FAERS Safety Report 8360986-X (Version None)
Quarter: 2012Q2

REPORT INFORMATION
  Report Type: 
  Country: None (occurrence: None)
  Receive Date: 20120515
  Receipt Date: 20120509
  Transmission Date: 20120825
  Serious: No
  Sender: FDA-Public Use
  Company Number: US-PFIZER INC-2012113643

PATIENT
  Sex: Male
  Weight: 83.9 kg

DRUGS (4)
  1. VIAGRA [Suspect]
     Dosage: 100 MG, AS NEEDED
     Route: 048
  2. VIAGRA [Suspect]
     Indication: ERECTILE DYSFUNCTION
     Dosage: 50 MG, AS NEEDED
     Route: 048
     Dates: start: 20020101
  3. ACETYLSALICYLIC ACID [Concomitant]
     Dosage: UNK, 1X/DAY
  4. BENADRYL [Concomitant]
     Indication: INSOMNIA
     Dosage: UNK, AS NEEDED

REACTIONS (2)
  - DRUG EFFECT DECREASED [None]
  - DRUG INEFFECTIVE [None]
